FAERS Safety Report 7282787-6 (Version None)
Quarter: 2011Q1

REPORT INFORMATION
  Report Type: 
  Country: None (occurrence: None)
  Receive Date: 20110209
  Receipt Date: 20101220
  Transmission Date: 20110831
  Serious: Yes (Life-Threatening, Hospitalization, Other)
  Sender: FDA-Public Use
  Company Number: US-BAYER-201014053NA

PATIENT
  Sex: Female
  Weight: 62.273 kg

DRUGS (13)
  1. PREDNISONE [Concomitant]
  2. YASMIN [Suspect]
     Indication: CONTRACEPTION
     Route: 048
     Dates: start: 20070101, end: 20070601
  3. NOVOLOG [Concomitant]
     Dosage: SLIDING SCALE
  4. REGLAN [Concomitant]
     Indication: RENAL FAILURE
  5. YAZ [Suspect]
     Indication: CONTRACEPTION
  6. HUMULIN R [Concomitant]
  7. ATENOLOL [Concomitant]
     Dosage: 25 MG IN THE MORNING AND 25 MG AT BEDTIME
  8. HUMULIN N [Concomitant]
  9. LANTUS [Concomitant]
     Dosage: 18 UNITS
  10. YASMIN [Suspect]
     Indication: ACNE
     Dosage: UNK
     Dates: start: 20050311, end: 20060207
  11. YAZ [Suspect]
     Indication: ACNE
     Route: 048
     Dates: start: 20050101, end: 20060101
  12. BENICAR [Concomitant]
     Dosage: 40 MG (DAILY DOSE), ,
  13. IBUPROFEN [Concomitant]
     Dosage: USED VERY RARELY

REACTIONS (6)
  - FATIGUE [None]
  - RENAL FAILURE ACUTE [None]
  - RENAL FAILURE [None]
  - NAUSEA [None]
  - PROTEINURIA [None]
  - VOMITING [None]
